FAERS Safety Report 11027170 (Version 2)
Quarter: 2018Q4

REPORT INFORMATION
  Report Type: Spontaneous
  Country: FR (occurrence: FR)
  Receive Date: 20150414
  Receipt Date: 20181225
  Transmission Date: 20190204
  Serious: Yes (Hospitalization)
  Sender: FDA-Public Use
  Company Number: PHHY2015FR043416

PATIENT
  Age: 77 Year
  Sex: Male

DRUGS (5)
  1. PAROXETINE ARROW [Suspect]
     Active Substance: PAROXETINE
     Indication: PRODUCT USED FOR UNKNOWN INDICATION
     Dosage: 1 ?G/L, QD
     Route: 048
     Dates: end: 20141115
  2. EXELON [Suspect]
     Active Substance: RIVASTIGMINE TARTRATE
     Dosage: 4.6 MG, UNK
     Route: 062
     Dates: start: 20140610, end: 20141112
  3. STALEVO [Suspect]
     Active Substance: CARBIDOPA\ENTACAPONE\LEVODOPA
     Indication: PRODUCT USED FOR UNKNOWN INDICATION
     Dosage: 3 ?G/L, QD
     Route: 048
     Dates: end: 20141112
  4. ASPEGIC                                 /FRA/ [Concomitant]
     Active Substance: ASPIRIN DL-LYSINE
     Indication: PRODUCT USED FOR UNKNOWN INDICATION
     Route: 065
  5. EXELON [Suspect]
     Active Substance: RIVASTIGMINE TARTRATE
     Indication: PARKINSON^S DISEASE
     Dosage: 9.5 MG, UNK
     Route: 062
     Dates: end: 201405

REACTIONS (7)
  - Hallucination [Recovering/Resolving]
  - Facial bones fracture [Unknown]
  - Fall [Unknown]
  - Cognitive disorder [Unknown]
  - Aggression [Unknown]
  - Confusional state [Recovering/Resolving]
  - Non-24-hour sleep-wake disorder [Unknown]

NARRATIVE: CASE EVENT DATE: 201410
